FAERS Safety Report 7147823-6 (Version None)
Quarter: 2010Q4

REPORT INFORMATION
  Report Type: 
  Country: None (occurrence: None)
  Receive Date: 20101206
  Receipt Date: 20101206
  Transmission Date: 20110411
  Serious: Yes (Life-Threatening)
  Sender: FDA-Public Use
  Company Number: None

PATIENT
  Age: 52 Year
  Sex: Male
  Weight: 89.8122 kg

DRUGS (1)
  1. MUCINEX D [Suspect]
     Dates: start: 20101128, end: 20101202

REACTIONS (8)
  - BLOOD PRESSURE INCREASED [None]
  - CHILLS [None]
  - FATIGUE [None]
  - FEELING ABNORMAL [None]
  - HEART RATE INCREASED [None]
  - INCOHERENT [None]
  - PYREXIA [None]
  - TREMOR [None]
